FAERS Safety Report 10675929 (Version 12)
Quarter: 2015Q3

REPORT INFORMATION
  Report Type: Report from Study
  Country: CA (occurrence: CA)
  Receive Date: 20141225
  Receipt Date: 20150922
  Transmission Date: 20151125
  Serious: Yes (Death, Hospitalization, Other)
  Sender: FDA-Public Use
  Company Number: CA-ROCHE-1295736

PATIENT
  Age: 68 Year
  Sex: Male
  Weight: 80 kg

DRUGS (18)
  1. IRBESARTAN. [Concomitant]
     Active Substance: IRBESARTAN
  2. ASA [Concomitant]
     Active Substance: ASPIRIN
  3. CORTISONE [Suspect]
     Active Substance: CORTISONE\HYDROCORTISONE
     Indication: PRODUCT USED FOR UNKNOWN INDICATION
     Route: 065
  4. METHOTREXATE [Concomitant]
     Active Substance: METHOTREXATE
     Route: 065
  5. PREDNISONE. [Concomitant]
     Active Substance: PREDNISONE
  6. MOMETASONE [Concomitant]
     Active Substance: MOMETASONE
  7. FOLIC ACID. [Concomitant]
     Active Substance: FOLIC ACID
  8. CLONAZEPAM. [Concomitant]
     Active Substance: CLONAZEPAM
  9. TOPICORT (CANADA) [Concomitant]
  10. ACTEMRA [Suspect]
     Active Substance: TOCILIZUMAB
     Route: 042
     Dates: start: 20130515
  11. ACTEMRA [Suspect]
     Active Substance: TOCILIZUMAB
     Route: 042
     Dates: start: 20141121
  12. ACTEMRA [Suspect]
     Active Substance: TOCILIZUMAB
     Route: 042
     Dates: start: 20141219
  13. CELEBREX [Concomitant]
     Active Substance: CELECOXIB
  14. ESOMEPRAZOLE [Concomitant]
     Active Substance: ESOMEPRAZOLE
  15. ACTEMRA [Suspect]
     Active Substance: TOCILIZUMAB
     Route: 042
     Dates: start: 20140217
  16. ACTEMRA [Suspect]
     Active Substance: TOCILIZUMAB
     Route: 042
     Dates: start: 20150213
  17. HYDROCHLOROTHIAZIDE. [Concomitant]
     Active Substance: HYDROCHLOROTHIAZIDE
  18. ACTEMRA [Suspect]
     Active Substance: TOCILIZUMAB
     Indication: RHEUMATOID ARTHRITIS
     Route: 042
     Dates: start: 20110401, end: 2015

REACTIONS (19)
  - Drug ineffective [Unknown]
  - Phlebitis [Unknown]
  - Infusion related reaction [Unknown]
  - Pain in extremity [Recovering/Resolving]
  - Arthralgia [Not Recovered/Not Resolved]
  - Body temperature decreased [Unknown]
  - Musculoskeletal pain [Unknown]
  - Wound [Recovering/Resolving]
  - Hypertension [Unknown]
  - Death [Fatal]
  - Precancerous skin lesion [Unknown]
  - Hypertension [Unknown]
  - Pulmonary embolism [Unknown]
  - Muscle spasms [Recovering/Resolving]
  - Respiratory rate increased [Unknown]
  - Blood pressure diastolic decreased [Unknown]
  - Cellulitis [Not Recovered/Not Resolved]
  - Pain [Unknown]
  - Blood pressure increased [Unknown]

NARRATIVE: CASE EVENT DATE: 2013
